FAERS Safety Report 5016670-3 (Version None)
Quarter: 2006Q2

REPORT INFORMATION
  Report Type: 
  Country: None (occurrence: None)
  Receive Date: 20060602
  Receipt Date: 20060518
  Transmission Date: 20061013
  Serious: Yes (Other)
  Sender: FDA-Public Use
  Company Number: GB-JNJFOC-20050804755

PATIENT
  Sex: Male
  Weight: 33.4 kg

DRUGS (2)
  1. RISPERDAL [Suspect]
     Route: 048
  2. RISPERDAL [Suspect]
     Route: 048

REACTIONS (3)
  - COAGULATION FACTOR DECREASED [None]
  - CONTUSION [None]
  - PLATELET FUNCTION TEST ABNORMAL [None]
